FAERS Safety Report 10090662 (Version 2)
Quarter: 2014Q3

REPORT INFORMATION
  Report Type: Spontaneous
  Country: US (occurrence: None)
  Receive Date: 20140417
  Receipt Date: 20140807
  Transmission Date: 20150326
  Serious: Yes (Other)
  Sender: FDA-Public Use
  Company Number: ADR-2014-00613

PATIENT
  Age: 66 Year
  Sex: Female

DRUGS (4)
  1. TRAMADOL [Suspect]
     Active Substance: TRAMADOL
  2. COMPOUNDED BACLOFEN INTRATHECAL [Suspect]
     Active Substance: BACLOFEN
     Dosage: 60.65MCG/DAY
     Dates: start: 201010
  3. DILAUDID [Suspect]
     Active Substance: HYDROMORPHONE HYDROCHLORIDE
     Dosage: .788MG/DAY
  4. IBUPROFEN. [Suspect]
     Active Substance: IBUPROFEN

REACTIONS (8)
  - Hypersensitivity [None]
  - Nausea [None]
  - Dizziness [None]
  - Overdose [None]
  - Pruritus [None]
  - Somnolence [None]
  - Feeling abnormal [None]
  - Yawning [None]
